FAERS Safety Report 4974988-4 (Version None)
Quarter: 2006Q2

REPORT INFORMATION
  Report Type: 
  Country: None (occurrence: None)
  Receive Date: 20060414
  Receipt Date: 20060414
  Transmission Date: 20061013
  Serious: Yes (Death, Life-Threatening, Hospitalization)
  Sender: FDA-Public Use
  Company Number: None

PATIENT
  Age: 90 Year
  Sex: Female
  Weight: 58.9676 kg

DRUGS (2)
  1. MACROBID [Suspect]
     Indication: URINARY TRACT INFECTION
     Dates: start: 20050601, end: 20060315
  2. NITROFURANTOIN [Suspect]
     Dates: start: 20050601, end: 20060315

REACTIONS (2)
  - FALL [None]
  - HEPATIC FAILURE [None]
